FAERS Safety Report 19548085 (Version 1)
Quarter: 2021Q3

REPORT INFORMATION
  Report Type: Spontaneous
  Country: US (occurrence: US)
  Receive Date: 20210714
  Receipt Date: 20210714
  Transmission Date: 20211014
  Serious: Yes (Other)
  Sender: FDA-Public Use
  Company Number: None

PATIENT
  Age: 82 Year
  Sex: Female
  Weight: 85.5 kg

DRUGS (8)
  1. GABAPENTIN 300MG CAPS [Suspect]
     Active Substance: GABAPENTIN
     Indication: NEURALGIA
     Dosage: ?          QUANTITY:1 CAPSULE(S);?
     Route: 048
     Dates: start: 20210707, end: 20210711
  2. NITROSTAT [Concomitant]
     Active Substance: NITROGLYCERIN
  3. ASPIRIN 325 MG [Concomitant]
     Active Substance: ASPIRIN
  4. SPIRONOLACTONE. [Concomitant]
     Active Substance: SPIRONOLACTONE
  5. DIGOXIN .125 MG [Concomitant]
  6. TORSEMIDE. [Concomitant]
     Active Substance: TORSEMIDE
  7. METOPROLOL TARTRATE. [Concomitant]
     Active Substance: METOPROLOL TARTRATE
  8. NAPROXEN SODIUM. [Concomitant]
     Active Substance: NAPROXEN SODIUM

REACTIONS (2)
  - Product prescribing error [None]
  - Hallucination [None]

NARRATIVE: CASE EVENT DATE: 20210710
